FAERS Safety Report 4371193-X (Version None)
Quarter: 2004Q2

REPORT INFORMATION
  Report Type: 
  Country: None (occurrence: None)
  Receive Date: 20040604
  Receipt Date: 20040524
  Transmission Date: 20050107
  Serious: Yes (Hospitalization, Disabling, Other)
  Sender: FDA-Public Use
  Company Number: US-GLAXOSMITHKLINE-A0513010A

PATIENT
  Sex: Female

DRUGS (2)
  1. PAXIL [Suspect]
  2. ELAVIL [Suspect]

REACTIONS (17)
  - ABASIA [None]
  - AGGRESSION [None]
  - ARTHRALGIA [None]
  - BRAIN DAMAGE [None]
  - COMA [None]
  - DEPRESSION [None]
  - DRUG WITHDRAWAL SYNDROME [None]
  - HAEMATOMA [None]
  - INTENTIONAL OVERDOSE [None]
  - MANIA [None]
  - MEMORY IMPAIRMENT [None]
  - MENTAL IMPAIRMENT [None]
  - NERVE INJURY [None]
  - PARALYSIS [None]
  - REFLEX SYMPATHETIC DYSTROPHY [None]
  - SCIATIC NERVE INJURY [None]
  - VISUAL ACUITY REDUCED [None]
